FAERS Safety Report 5602058-0 (Version None)
Quarter: 2008Q1

REPORT INFORMATION
  Report Type: 
  Country: None (occurrence: None)
  Receive Date: 20080118
  Receipt Date: 20071211
  Transmission Date: 20080703
  Serious: Yes (Other)
  Sender: FDA-Public Use
  Company Number: B0500332A

PATIENT
  Age: 17 Year
  Sex: Female

DRUGS (1)
  1. LAMOTRIGINE [Suspect]
     Indication: DEPRESSION

REACTIONS (6)
  - AGITATION [None]
  - ELEVATED MOOD [None]
  - FLIGHT OF IDEAS [None]
  - GRANDIOSITY [None]
  - LIBIDO INCREASED [None]
  - MANIA [None]
